FAERS Safety Report 20634876 (Version 1)
Quarter: 2022Q1

REPORT INFORMATION
  Report Type: Spontaneous
  Country: CN (occurrence: None)
  Receive Date: 20220325
  Receipt Date: 20220325
  Transmission Date: 20220423
  Serious: Yes (Other)
  Sender: FDA-Public Use
  Company Number: CN-ROCHE-3056438

PATIENT
  Age: 66 Year
  Sex: Male

DRUGS (9)
  1. MABTHERA [Suspect]
     Active Substance: RITUXIMAB
     Indication: B-cell small lymphocytic lymphoma
     Route: 065
     Dates: start: 20211207
  2. GAZYVA [Suspect]
     Active Substance: OBINUTUZUMAB
     Indication: B-cell small lymphocytic lymphoma
     Route: 042
     Dates: start: 20220112, end: 20220114
  3. GAZYVA [Suspect]
     Active Substance: OBINUTUZUMAB
     Route: 042
     Dates: start: 20220211, end: 20220213
  4. GAZYVA [Suspect]
     Active Substance: OBINUTUZUMAB
     Route: 042
     Dates: start: 20220317
  5. BENDAMUSTINE [Concomitant]
     Active Substance: BENDAMUSTINE
     Indication: B-cell small lymphocytic lymphoma
     Dosage: 150MG D1, 175MG D2
     Dates: start: 20211207, end: 20211209
  6. BENDAMUSTINE [Concomitant]
     Active Substance: BENDAMUSTINE
     Dosage: D1, D2
     Dates: start: 20220112, end: 20220114
  7. BENDAMUSTINE [Concomitant]
     Active Substance: BENDAMUSTINE
     Dosage: D1, D2
     Dates: start: 20220211, end: 20220213
  8. FLUDARABINE [Concomitant]
     Active Substance: FLUDARABINE PHOSPHATE
     Indication: B-cell small lymphocytic lymphoma
     Dates: start: 20220317, end: 20220319
  9. CYCLOPHOSPHAMIDE [Concomitant]
     Active Substance: CYCLOPHOSPHAMIDE
     Indication: B-cell small lymphocytic lymphoma
     Dates: start: 20220317, end: 20220319

REACTIONS (3)
  - Myelosuppression [Unknown]
  - Cytopenia [Unknown]
  - Off label use [Unknown]
